FAERS Safety Report 7510723-3 (Version None)
Quarter: 2011Q2

REPORT INFORMATION
  Report Type: 
  Country: None (occurrence: None)
  Receive Date: 20110530
  Receipt Date: 20110516
  Transmission Date: 20111010
  Serious: Yes (Other)
  Sender: FDA-Public Use
  Company Number: PHHY2011CA38776

PATIENT
  Sex: Male

DRUGS (11)
  1. GLEEVEC [Suspect]
     Dosage: 200 MG, DAILY
     Route: 048
     Dates: start: 20110114, end: 20110121
  2. WARFARIN SODIUM [Concomitant]
  3. BISOPROLOL FUMARATE [Concomitant]
     Dosage: 5 MG, DAILY
     Route: 048
  4. NILOTINIB [Concomitant]
  5. ALLOPURINOL [Concomitant]
     Dosage: 100 MG, DAILY
     Route: 048
  6. COUMADIN [Concomitant]
  7. PROSCAR [Concomitant]
     Dosage: 5 MG, UNK
  8. CODEINE [Concomitant]
     Dosage: 30 MG, PRN
  9. GLEEVEC [Suspect]
     Indication: CHRONIC MYELOID LEUKAEMIA
     Dosage: 400 MG, DAILY
     Route: 048
  10. ATIVAN [Concomitant]
     Dosage: 2 MG, PRN
  11. PRILOSEC [Concomitant]
     Dosage: 20 MG, UNK

REACTIONS (4)
  - ELECTROCARDIOGRAM QT PROLONGED [None]
  - WHITE BLOOD CELL COUNT DECREASED [None]
  - RENAL IMPAIRMENT [None]
  - BLOOD CREATININE INCREASED [None]
